FAERS Safety Report 4918639-3 (Version None)
Quarter: 2006Q1

REPORT INFORMATION
  Report Type: 
  Country: None (occurrence: None)
  Receive Date: 20060221
  Receipt Date: 20060221
  Transmission Date: 20060701
  Serious: Yes (Disabling)
  Sender: FDA-Public Use
  Company Number: None

PATIENT
  Age: 74 Year
  Sex: Female
  Weight: 70 kg

DRUGS (2)
  1. WARFARIN   10MG-02/06/2006-, 6MG-02/07/2006- [Suspect]
     Indication: ANTICOAGULANT THERAPY
     Dosage: 10MG-02/06/2006-,  6MG-02/07/20  DAILY PO
     Route: 048
     Dates: start: 20060206, end: 20060207
  2. CEFAZOLIN   1MG/10ML [Suspect]
     Indication: PREOPERATIVE CARE
     Dosage: 1MG/10ML  Q8H  PO
     Route: 048
     Dates: start: 20060206, end: 20060208

REACTIONS (1)
  - INTERNATIONAL NORMALISED RATIO INCREASED [None]
